FAERS Safety Report 14563187 (Version 1)
Quarter: 2018Q1

REPORT INFORMATION
  Report Type: Spontaneous
  Country: US (occurrence: US)
  Receive Date: 20180222
  Receipt Date: 20180222
  Transmission Date: 20180509
  Serious: No
  Sender: FDA-Public Use
  Company Number: None

PATIENT
  Age: 49 Year
  Sex: Female
  Weight: 99 kg

DRUGS (9)
  1. PRILOSEC [Concomitant]
     Active Substance: OMEPRAZOLE MAGNESIUM
  2. LEVOTHYROXINE. [Concomitant]
     Active Substance: LEVOTHYROXINE
  3. METOPROLOL. [Concomitant]
     Active Substance: METOPROLOL
  4. CIPROFLOXACIN. [Suspect]
     Active Substance: CIPROFLOXACIN
     Indication: EAR INFECTION
     Dosage: QUANTITY:20 TABLET(S);?
     Route: 048
     Dates: start: 20180214, end: 20180221
  5. HYDROCODEINE [Concomitant]
     Active Substance: DIHYDROCODEINE PHOSPHATE
  6. CRESTOR [Concomitant]
     Active Substance: ROSUVASTATIN CALCIUM
  7. VITAMIN D3 [Concomitant]
     Active Substance: CHOLECALCIFEROL
  8. VITAMIN B12 [Concomitant]
     Active Substance: CYANOCOBALAMIN
  9. IBUPROFEN. [Concomitant]
     Active Substance: IBUPROFEN

REACTIONS (4)
  - Back pain [None]
  - Nausea [None]
  - Flank pain [None]
  - Abdominal pain upper [None]

NARRATIVE: CASE EVENT DATE: 20180221
